FAERS Safety Report 5016404-2 (Version None)
Quarter: 2006Q2

REPORT INFORMATION
  Report Type: 
  Country: None (occurrence: None)
  Receive Date: 20060531
  Receipt Date: 20060531
  Transmission Date: 20061013
  Serious: Yes (Hospitalization)
  Sender: FDA-Public Use
  Company Number: None

PATIENT
  Age: 77 Year
  Sex: Female
  Weight: 103.8737 kg

DRUGS (2)
  1. CYMBALTA [Suspect]
     Indication: ANXIETY
     Dosage: 20 MG   DAILY   PO
     Route: 048
     Dates: start: 20060511, end: 20060516
  2. CYMBALTA [Suspect]
     Indication: DEPRESSION
     Dosage: 20 MG   DAILY   PO
     Route: 048
     Dates: start: 20060511, end: 20060516

REACTIONS (5)
  - ASTHENIA [None]
  - FEELING ABNORMAL [None]
  - HAEMOGLOBIN DECREASED [None]
  - HYPONATRAEMIA [None]
  - URINARY TRACT INFECTION [None]
